FAERS Safety Report 4354000-0 (Version None)
Quarter: 2004Q2

REPORT INFORMATION
  Report Type: 
  Country: None (occurrence: None)
  Receive Date: 20040506
  Receipt Date: 20040325
  Transmission Date: 20050107
  Serious: No
  Sender: FDA-Public Use
  Company Number: US-GLAXOSMITHKLINE-A0504579A

PATIENT
  Age: 57 Year
  Sex: Female

DRUGS (15)
  1. AVANDAMET [Suspect]
     Route: 048
     Dates: start: 20040305, end: 20040301
  2. AVANDIA [Suspect]
     Dosage: 4MG TWICE PER DAY
     Route: 048
     Dates: start: 20040319
  3. MEDROL [Concomitant]
  4. LEVOXYL [Concomitant]
  5. METHOTREXATE [Concomitant]
  6. FOLIC ACID [Concomitant]
  7. ALBUTEROL [Concomitant]
  8. WARFARIN SODIUM [Concomitant]
  9. CYCLOBENZAPRINE [Concomitant]
  10. THEOPHYLLINE [Concomitant]
  11. KLONOPIN [Concomitant]
  12. PATANOL [Concomitant]
  13. EYE DROPS [Concomitant]
  14. DARVOCET [Concomitant]
  15. ENALAPRIL MALEATE [Concomitant]

REACTIONS (8)
  - DIARRHOEA [None]
  - DRUG INEFFECTIVE [None]
  - DRY MOUTH [None]
  - FATIGUE [None]
  - HEADACHE [None]
  - NAUSEA [None]
  - SOMNOLENCE [None]
  - URINE ODOUR ABNORMAL [None]
